FAERS Safety Report 4517311-1 (Version None)
Quarter: 2004Q4

REPORT INFORMATION
  Report Type: 
  Country: None (occurrence: None)
  Receive Date: 20041008
  Receipt Date: 20040624
  Transmission Date: 20050328
  Serious: No
  Sender: FDA-Public Use
  Company Number: 2004S1000134

PATIENT
  Age: 79 Year
  Sex: Male
  Weight: 85 kg

DRUGS (9)
  1. CUBICIN [Suspect]
     Indication: STAPHYLOCOCCAL BACTERAEMIA
     Dosage: IV
     Route: 042
     Dates: start: 20040601, end: 20040601
  2. LASIX [Concomitant]
  3. INSULIN [Concomitant]
  4. LISINOPRIL [Concomitant]
  5. ZOCOR [Concomitant]
  6. GENTAMICIN [Concomitant]
  7. FLAGYL [Concomitant]
  8. ZOSYN [Concomitant]
  9. IV CONTRAST DYE [Concomitant]

REACTIONS (1)
  - RENAL FAILURE [None]
